FAERS Safety Report 5634824-X (Version None)
Quarter: 2008Q1

REPORT INFORMATION
  Report Type: 
  Country: None (occurrence: None)
  Receive Date: 20080222
  Receipt Date: 20080213
  Transmission Date: 20080703
  Serious: Yes (Death)
  Sender: FDA-Public Use
  Company Number: JP-MERCK-0802USA03549

PATIENT
  Age: 73 Year
  Sex: Male

DRUGS (1)
  1. PRIMAXIN [Suspect]
     Route: 065

REACTIONS (3)
  - DISSEMINATED INTRAVASCULAR COAGULATION [None]
  - SEPSIS [None]
  - URINARY TRACT INFECTION [None]
